FAERS Safety Report 19883876 (Version 1)
Quarter: 2021Q3

REPORT INFORMATION
  Report Type: Spontaneous
  Country: US (occurrence: US)
  Receive Date: 20210925
  Receipt Date: 20210925
  Transmission Date: 20211014
  Serious: Yes (Hospitalization)
  Sender: FDA-Public Use
  Company Number: None

PATIENT
  Age: 74 Year
  Sex: Female
  Weight: 74.8 kg

DRUGS (17)
  1. ASPIRIN 81 MG [Concomitant]
     Active Substance: ASPIRIN
     Dates: start: 20210915, end: 20210921
  2. SODIUM BICARBONATE 150 MEQ [Concomitant]
     Dates: start: 20210915, end: 20210917
  3. PANTOPRAZOLE 40 MG [Concomitant]
     Active Substance: PANTOPRAZOLE SODIUM
     Dates: start: 20210917, end: 20210921
  4. AMLODIPINE 10 MG [Concomitant]
     Active Substance: AMLODIPINE BESYLATE
     Dates: start: 20210915, end: 20210921
  5. NACL 0.9% IV [Concomitant]
     Dates: start: 20210914, end: 20210920
  6. ATORVASTATIN 40 MG [Concomitant]
     Active Substance: ATORVASTATIN
     Dates: start: 20210914, end: 20210920
  7. CARVEDILOL 12.5 MG [Concomitant]
     Active Substance: CARVEDILOL
     Dates: start: 20210915, end: 20210917
  8. HEPARIN 7,500 U [Concomitant]
     Dates: start: 20210915, end: 20210921
  9. HYDRALAZINE 25 MG [Concomitant]
     Active Substance: HYDRALAZINE HYDROCHLORIDE
     Dates: start: 20210919, end: 20210921
  10. LACTATED RINGERS IV [Concomitant]
     Dates: start: 20210916, end: 20210919
  11. POTASSIUM CHLORIDE 20 MEQ [Concomitant]
     Dates: start: 20210914, end: 20210918
  12. ONDANSETRON 4 MG [Concomitant]
     Active Substance: ONDANSETRON
     Dates: start: 20210915, end: 20210919
  13. BUPROPION SR 150 MG [Concomitant]
     Active Substance: BUPROPION
     Dates: start: 20210915, end: 20210921
  14. HEPARIN 5,000 U [Concomitant]
     Dates: start: 20210914, end: 20210915
  15. REGEN?COV [Suspect]
     Active Substance: CASIRIVIMAB\IMDEVIMAB
     Indication: COVID-19
     Dosage: ?          OTHER FREQUENCY:ONCE;?
     Route: 041
     Dates: start: 20210913, end: 20210913
  16. CIPROFLOXACIN 400MG IV [Concomitant]
     Active Substance: CIPROFLOXACIN
     Dates: start: 20210915, end: 20210917
  17. INSULIN LISPRO SQ [Concomitant]
     Dates: start: 20210915, end: 20210920

REACTIONS (16)
  - Fibrin D dimer increased [None]
  - Vomiting [None]
  - Anion gap increased [None]
  - Dysphagia [None]
  - Blood pressure systolic increased [None]
  - Blood sodium decreased [None]
  - Nausea [None]
  - Tachypnoea [None]
  - Blood glucose increased [None]
  - Leukocytosis [None]
  - Hydronephrosis [None]
  - Blood potassium decreased [None]
  - Haemoglobin decreased [None]
  - Acute kidney injury [None]
  - Diarrhoea [None]
  - Hypophagia [None]

NARRATIVE: CASE EVENT DATE: 20210914
